FAERS Safety Report 6996768-0 (Version None)
Quarter: 2010Q3

REPORT INFORMATION
  Report Type: 
  Country: None (occurrence: None)
  Receive Date: 20100918
  Receipt Date: 20090817
  Transmission Date: 20110219
  Serious: Yes (Other)
  Sender: FDA-Public Use
  Company Number: US-WYE-H10088709

PATIENT
  Sex: Male

DRUGS (8)
  1. EFFEXOR [Suspect]
     Dates: start: 20070521, end: 20090620
  2. CLONAZEPAM [Suspect]
     Dosage: OVERDOSE AMOUNT UNKNOWN
     Route: 048
     Dates: start: 20080304, end: 20080304
  3. ALCOHOL [Suspect]
     Dosage: UNSPECIFIED AMOUNT OF SCOTCH
     Dates: start: 20080304, end: 20080304
  4. OXYCODONE HCL [Suspect]
     Dosage: UNKNOWN
  5. METHOCARBAMOL [Suspect]
     Dosage: UNKNOWN
  6. PROVIGIL [Concomitant]
     Dates: start: 20080227
  7. REBIF [Suspect]
     Indication: MULTIPLE SCLEROSIS
     Route: 058
     Dates: start: 20061116, end: 20090101
  8. LUNESTA [Suspect]
     Route: 048

REACTIONS (4)
  - DEPRESSED LEVEL OF CONSCIOUSNESS [None]
  - MULTIPLE DRUG OVERDOSE [None]
  - SUICIDAL IDEATION [None]
  - SUICIDE ATTEMPT [None]
